FAERS Safety Report 10228581 (Version 3)
Quarter: 2015Q1

REPORT INFORMATION
  Report Type: Spontaneous
  Country: US (occurrence: US)
  Receive Date: 20140610
  Receipt Date: 20150327
  Transmission Date: 20150720
  Serious: Yes (Other)
  Sender: FDA-Public Use
  Company Number: US-BAYER-2014-085559

PATIENT
  Age: 28 Year
  Sex: Female
  Weight: 104.31 kg

DRUGS (15)
  1. MOTRIN [Concomitant]
     Active Substance: IBUPROFEN
  2. YAZ [Suspect]
     Active Substance: DROSPIRENONE\ETHINYL ESTRADIOL
     Indication: PREMENSTRUAL DYSPHORIC DISORDER
  3. ADVIL [Concomitant]
     Active Substance: IBUPROFEN
  4. YAZ [Suspect]
     Active Substance: DROSPIRENONE\ETHINYL ESTRADIOL
     Indication: PREMENSTRUAL SYNDROME
  5. YASMIN [Suspect]
     Active Substance: DROSPIRENONE\ETHINYL ESTRADIOL
     Indication: ACNE
  6. SERTRALINE HYDROCHLORIDE. [Concomitant]
     Active Substance: SERTRALINE HYDROCHLORIDE
     Dosage: 100 MG, UNK
  7. ALEVE [Concomitant]
     Active Substance: NAPROXEN SODIUM
  8. RELAFEN [Concomitant]
     Active Substance: NABUMETONE
  9. YASMIN [Suspect]
     Active Substance: DROSPIRENONE\ETHINYL ESTRADIOL
     Indication: PREMENSTRUAL SYNDROME
  10. PENICILLIN VK [Concomitant]
     Active Substance: PENICILLIN V POTASSIUM
     Dosage: 500 MG, UNK
  11. ZOLOFT [Concomitant]
     Active Substance: SERTRALINE HYDROCHLORIDE
  12. YASMIN [Suspect]
     Active Substance: DROSPIRENONE\ETHINYL ESTRADIOL
     Indication: PREMENSTRUAL DYSPHORIC DISORDER
     Dosage: UNK
     Dates: start: 2008, end: 200904
  13. KEFLEX [Concomitant]
     Active Substance: CEPHALEXIN
  14. YAZ [Suspect]
     Active Substance: DROSPIRENONE\ETHINYL ESTRADIOL
     Indication: ACNE
     Dosage: UNK
     Dates: start: 2008, end: 200904
  15. DICLOXACILLIN [Concomitant]
     Active Substance: DICLOXACILLIN

REACTIONS (11)
  - Thrombophlebitis superficial [None]
  - Pain [Recovered/Resolved]
  - Emotional distress [None]
  - Pain [None]
  - Deep vein thrombosis [Recovered/Resolved]
  - Anxiety [None]
  - Abdominal pain [None]
  - Injury [Recovered/Resolved]
  - Thrombosis [None]
  - General physical health deterioration [Recovered/Resolved]
  - Depression [None]

NARRATIVE: CASE EVENT DATE: 200904
